FAERS Safety Report 16748145 (Version 3)
Quarter: 2019Q3

REPORT INFORMATION
  Report Type: Report from Study
  Country: US (occurrence: US)
  Receive Date: 20190827
  Receipt Date: 20190909
  Transmission Date: 20191005
  Serious: Yes (Hospitalization, Disabling)
  Sender: FDA-Public Use
  Company Number: US-GILEAD-2019-0418943

PATIENT
  Age: 64 Year
  Sex: Male
  Weight: 65.1 kg

DRUGS (49)
  1. AXICABTAGENE CILOLEUCEL [Suspect]
     Active Substance: AXICABTAGENE CILOLEUCEL
     Indication: DIFFUSE LARGE B-CELL LYMPHOMA
     Dosage: UNK
     Route: 042
     Dates: start: 20190708, end: 20190708
  2. MESNA. [Suspect]
     Active Substance: MESNA
     Indication: PROPHYLAXIS
     Route: 042
  3. PEPCID [Concomitant]
     Active Substance: FAMOTIDINE
     Dosage: TWICE DAILY
     Dates: start: 20190708, end: 20190711
  4. NORMAL SALINE [Concomitant]
     Active Substance: SODIUM CHLORIDE
     Dosage: ONCE
     Dates: start: 20190715, end: 20190715
  5. GADOBENATE DIMEGLUMINE [Concomitant]
     Active Substance: GADOBENATE DIMEGLUMINE
     Dosage: ONCE
     Dates: start: 20190714, end: 20190714
  6. ZOFRAN [Concomitant]
     Active Substance: ONDANSETRON HYDROCHLORIDE
     Dosage: ONCE
     Dates: start: 20190705, end: 20190705
  7. BENADRYL [Concomitant]
     Active Substance: DIPHENHYDRAMINE HYDROCHLORIDE
     Dosage: AS NECESSARY
     Dates: start: 20190704, end: 20190704
  8. ACYCLOVIR [ACICLOVIR] [Concomitant]
     Active Substance: ACYCLOVIR
     Dosage: THREE TIMES DAILY
     Dates: start: 20190704
  9. ATIVAN [Concomitant]
     Active Substance: LORAZEPAM
     Dosage: AS NECESSARY
     Dates: start: 20190704, end: 20190708
  10. TYLENOL [Concomitant]
     Active Substance: ACETAMINOPHEN
     Dosage: ONCE
     Dates: start: 20190709, end: 20190709
  11. SENOKOT [Concomitant]
     Active Substance: SENNOSIDES
     Dosage: AS NECESSARY
     Dates: start: 20190709, end: 20190714
  12. DESYREL [Concomitant]
     Active Substance: TRAZODONE HYDROCHLORIDE
     Dosage: ONCE
     Dates: start: 20190718, end: 20190718
  13. FENTANYL. [Concomitant]
     Active Substance: FENTANYL
     Dosage: AS NECESSARY
     Dates: start: 20190715, end: 20190715
  14. VERSED [Concomitant]
     Active Substance: MIDAZOLAM HYDROCHLORIDE
     Dosage: AS NECESSARY
     Dates: start: 20190715, end: 20190715
  15. NORMAL SALINE [Concomitant]
     Active Substance: SODIUM CHLORIDE
     Dosage: THREE TIMES DAILY
     Dates: start: 20190709, end: 20190710
  16. DESYREL [Concomitant]
     Active Substance: TRAZODONE HYDROCHLORIDE
     Dosage: AS NECESSARY
     Dates: start: 20190709, end: 20190718
  17. MELATONIN [Concomitant]
     Active Substance: MELATONIN
     Dosage: ONCE
     Dates: start: 20190716, end: 20190716
  18. MELATONIN [Concomitant]
     Active Substance: MELATONIN
     Dosage: DAILY
     Dates: start: 20190717, end: 20190718
  19. PROTONIX [Concomitant]
     Active Substance: PANTOPRAZOLE SODIUM
     Dosage: DAILY
     Dates: start: 20190718
  20. EMEND [FOSAPREPITANT MEGLUMINE] [Concomitant]
     Dosage: ONCE
     Dates: start: 20190704, end: 20190704
  21. ZOFRAN [Concomitant]
     Active Substance: ONDANSETRON HYDROCHLORIDE
     Dosage: ONCE
     Dates: start: 20190706, end: 20190706
  22. BENADRYL [Concomitant]
     Active Substance: DIPHENHYDRAMINE HYDROCHLORIDE
     Dosage: ONCE
     Dates: start: 20190709, end: 20190709
  23. POTASSIUM CHLORIDE. [Concomitant]
     Active Substance: POTASSIUM CHLORIDE
     Dosage: AS NECESSARY
     Dates: start: 20190709, end: 20190719
  24. LIDOCAINE. [Concomitant]
     Active Substance: LIDOCAINE
     Dosage: AS NECESSARY
     Dates: start: 20190715, end: 20190715
  25. OXYCODONE [Concomitant]
     Active Substance: OXYCODONE
     Dosage: ONCE
     Dates: start: 20190718, end: 20190718
  26. CYCLOPHOSPHAMIDE. [Suspect]
     Active Substance: CYCLOPHOSPHAMIDE
     Indication: BONE MARROW CONDITIONING REGIMEN
     Dosage: ^500,^ QD
     Route: 042
     Dates: start: 20190704, end: 20190706
  27. ALVESCO [Concomitant]
     Active Substance: CICLESONIDE
     Dosage: TWICE DAILY
     Dates: start: 20190418
  28. ZOFRAN [Concomitant]
     Active Substance: ONDANSETRON HYDROCHLORIDE
     Dosage: DAILY
     Dates: start: 20190708, end: 20190710
  29. FLUDARABINE [Suspect]
     Active Substance: FLUDARABINE PHOSPHATE
     Indication: BONE MARROW CONDITIONING REGIMEN
     Dosage: ^30,^ QD
     Route: 042
     Dates: start: 20190704, end: 20190706
  30. ALLOPURINOL. [Concomitant]
     Active Substance: ALLOPURINOL
     Dosage: DAILY
     Dates: start: 20190704, end: 20190704
  31. COMPAZINE [Concomitant]
     Active Substance: PROCHLORPERAZINE MALEATE
     Dosage: AS NECESSARY
     Dates: start: 20190704, end: 20190707
  32. NORMAL SALINE [Concomitant]
     Active Substance: SODIUM CHLORIDE
     Dosage: CONTINUOUS
     Dates: start: 20190708, end: 20190719
  33. NORMAL SALINE [Concomitant]
     Active Substance: SODIUM CHLORIDE
     Dosage: ONCE
     Dates: start: 20190714, end: 20190714
  34. NORMAL SALINE [Concomitant]
     Active Substance: SODIUM CHLORIDE
     Dosage: ONCE
     Dates: start: 20190719, end: 20190719
  35. POTASSIUM CHLORIDE. [Concomitant]
     Active Substance: POTASSIUM CHLORIDE
     Dosage: AS NECESSARY
     Dates: start: 20190717, end: 20190718
  36. NEUPOGEN [Concomitant]
     Active Substance: FILGRASTIM
     Dosage: AS NECESSARY
     Dates: start: 20190714, end: 20190717
  37. ACETAMINOPHEN. [Concomitant]
     Active Substance: ACETAMINOPHEN
     Dosage: ONCE
     Dates: start: 20190714, end: 20190714
  38. ACETAMINOPHEN. [Concomitant]
     Active Substance: ACETAMINOPHEN
     Dosage: ONCE
     Dates: start: 20190715, end: 20190715
  39. ZOSYN [Concomitant]
     Active Substance: PIPERACILLIN SODIUM\TAZOBACTAM SODIUM
     Dosage: THREE TIMES DAILY
     Dates: start: 20190715, end: 20190715
  40. IBUPROFEN. [Concomitant]
     Active Substance: IBUPROFEN
     Dosage: ONCE
     Dates: start: 20190715, end: 20190715
  41. VENTOLIN HFA [Concomitant]
     Active Substance: ALBUTEROL SULFATE
     Dosage: AS NECESSARY
     Dates: start: 2017
  42. KEPPRA [Concomitant]
     Active Substance: LEVETIRACETAM
     Dosage: TWICE DAILY
     Dates: start: 20190708
  43. ZOSYN [Concomitant]
     Active Substance: PIPERACILLIN SODIUM\TAZOBACTAM SODIUM
     Dosage: ONCE
     Dates: start: 20190714, end: 20190714
  44. DILAUDID [Concomitant]
     Active Substance: HYDROMORPHONE HYDROCHLORIDE
     Dosage: ONCE
     Dates: start: 20190714, end: 20190714
  45. REVATIO [Concomitant]
     Active Substance: SILDENAFIL CITRATE
     Dosage: AS NECESSARY
     Dates: start: 2017
  46. ZOFRAN [Concomitant]
     Active Substance: ONDANSETRON HYDROCHLORIDE
     Dosage: ONCE
     Dates: start: 20190704, end: 20190704
  47. COLACE [Concomitant]
     Active Substance: DOCUSATE SODIUM
     Dosage: AS NECESSARY
     Dates: start: 20190708, end: 20190711
  48. TYLENOL [Concomitant]
     Active Substance: ACETAMINOPHEN
     Dosage: OTHER
     Dates: start: 20190713, end: 20190716
  49. PROVENTIL [Concomitant]
     Active Substance: ALBUTEROL
     Dosage: ONCE
     Dates: start: 20190718, end: 20190718

REACTIONS (6)
  - Pyrexia [Recovered/Resolved]
  - Hypotension [Recovered/Resolved]
  - Confusional state [Recovering/Resolving]
  - Hypotension [Recovered/Resolved]
  - Dizziness [Recovered/Resolved]
  - Aphasia [Recovered/Resolved]

NARRATIVE: CASE EVENT DATE: 20190716
